FAERS Safety Report 7241571-X (Version None)
Quarter: 2011Q1

REPORT INFORMATION
  Report Type: 
  Country: None (occurrence: None)
  Receive Date: 20110124
  Receipt Date: 20110118
  Transmission Date: 20110831
  Serious: Yes (Other)
  Sender: FDA-Public Use
  Company Number: ES-MERCK-1101ESP00027

PATIENT
  Age: 78 Year
  Sex: Female

DRUGS (7)
  1. LORAZEPAM [Concomitant]
     Indication: ANXIETY
     Route: 048
  2. MIRTAZAPINE [Concomitant]
     Indication: DEPRESSION
     Route: 048
     Dates: start: 20090101
  3. BUDESONIDE AND FORMOTEROL FUMARATE [Concomitant]
     Indication: ASTHMA
     Route: 055
     Dates: start: 20100408
  4. ALTHIAZIDE AND SPIRONOLACTONE [Concomitant]
     Indication: HYPERTENSION
     Route: 048
  5. SINGULAIR [Suspect]
     Indication: ASTHMA
     Route: 048
     Dates: start: 20100408, end: 20100414
  6. BUDESONIDE [Concomitant]
     Indication: ASTHMA
     Route: 055
     Dates: start: 20100408
  7. MIRTAZAPINE [Concomitant]
     Route: 048
     Dates: start: 20090101

REACTIONS (3)
  - DRY MOUTH [None]
  - NERVOUSNESS [None]
  - ARTHRALGIA [None]
